FAERS Safety Report 9815571 (Version 1)
Quarter: 2014Q1

REPORT INFORMATION
  Report Type: Spontaneous
  Country: FR (occurrence: FR)
  Receive Date: 20140114
  Receipt Date: 20140114
  Transmission Date: 20141002
  Serious: Yes (Hospitalization)
  Sender: FDA-Public Use
  Company Number: FR-GE HEALTHCARE MEDICAL DIAGNOSTICS-OMPQ-PR-1401S-0013

PATIENT
  Age: 57 Year
  Sex: Female

DRUGS (11)
  1. OMNIPAQUE [Suspect]
     Indication: PRODUCT USED FOR UNKNOWN INDICATION
     Route: 042
     Dates: start: 20131126, end: 20131126
  2. OMNIPAQUE [Suspect]
     Indication: DIAGNOSTIC PROCEDURE
  3. ADVAGRAF [Concomitant]
  4. KARDEGIC [Concomitant]
  5. CELLCEPT [Concomitant]
  6. CARDENSIEL [Concomitant]
  7. INSULIN [Concomitant]
  8. CORTANCYL [Concomitant]
  9. EXFORGE HCT [Concomitant]
  10. TAHOR [Concomitant]
  11. XALACOM [Concomitant]

REACTIONS (1)
  - Renal failure acute [Recovering/Resolving]
